FAERS Safety Report 9349191 (Version 1)
Quarter: 2013Q2

REPORT INFORMATION
  Report Type: Spontaneous
  Country: GR (occurrence: GR)
  Receive Date: 20130614
  Receipt Date: 20130614
  Transmission Date: 20140414
  Serious: Yes (Other)
  Sender: FDA-Public Use
  Company Number: GR-JNJFOC-20130607001

PATIENT
  Age: 21 Year
  Sex: Female

DRUGS (1)
  1. REMICADE [Suspect]
     Indication: CROHN^S DISEASE
     Dosage: STRENGTH: 100MG/VIAL; START DATE: 26-AUG-2013 OR 27-AUG-2013
     Route: 042

REACTIONS (1)
  - Hyperthyroidism [Unknown]
